FAERS Safety Report 22344876 (Version 1)
Quarter: 2023Q2

REPORT INFORMATION
  Report Type: Spontaneous
  Country: US (occurrence: US)
  Receive Date: 20230519
  Receipt Date: 20230519
  Transmission Date: 20230721
  Serious: No
  Sender: FDA-Public Use
  Company Number: US-BEH-2023158692

PATIENT
  Age: 37 Year
  Sex: Female

DRUGS (7)
  1. HIZENTRA [Suspect]
     Active Substance: HUMAN IMMUNOGLOBULIN G
     Indication: Hypogammaglobulinaemia
     Dosage: 6 GRAM, QW
     Route: 058
     Dates: start: 2023
  2. ADDERALL [Concomitant]
     Active Substance: AMPHETAMINE ASPARTATE\AMPHETAMINE SULFATE\DEXTROAMPHETAMINE SACCHARATE\DEXTROAMPHETAMINE SULFATE
  3. BUDESONIDE [Concomitant]
     Active Substance: BUDESONIDE
  4. MAGNESIUM [Concomitant]
     Active Substance: MAGNESIUM
  5. VITAMINS [Concomitant]
     Active Substance: VITAMINS
  6. POTASSIUM [Concomitant]
     Active Substance: POTASSIUM
  7. VITAMIN D NOS [Concomitant]
     Active Substance: VITAMIN D NOS

REACTIONS (1)
  - Nasopharyngitis [Unknown]

NARRATIVE: CASE EVENT DATE: 20230501
